FAERS Safety Report 19608232 (Version 1)
Quarter: 2021Q3

REPORT INFORMATION
  Report Type: Spontaneous
  Country: US (occurrence: US)
  Receive Date: 20210726
  Receipt Date: 20210726
  Transmission Date: 20211014
  Serious: No
  Sender: FDA-Public Use
  Company Number: US-ALEMBIC PHARMACUETICALS LIMITED-2021SCAL000314

PATIENT

DRUGS (2)
  1. TIMOLOL MALEATE. [Suspect]
     Active Substance: TIMOLOL MALEATE
     Indication: OCULAR DISCOMFORT
     Dosage: 1 DROP EACH EYE AT NIGHT TIME
     Dates: start: 20201118
  2. LUMIGAN [Concomitant]
     Active Substance: BIMATOPROST
     Indication: PRODUCT USED FOR UNKNOWN INDICATION
     Dosage: 1 DROP ON BOTH EYES EVERY NIGHT

REACTIONS (7)
  - Eye pain [Not Recovered/Not Resolved]
  - Eye irritation [Recovered/Resolved]
  - Eyelid margin crusting [Not Recovered/Not Resolved]
  - Product quality issue [Unknown]
  - Dandruff [Not Recovered/Not Resolved]
  - Eye pruritus [Recovered/Resolved]
  - Foreign body sensation in eyes [Not Recovered/Not Resolved]

NARRATIVE: CASE EVENT DATE: 20201118
